FAERS Safety Report 14544103 (Version 1)
Quarter: 2018Q1

REPORT INFORMATION
  Report Type: Spontaneous
  Country: US (occurrence: US)
  Receive Date: 20180216
  Receipt Date: 20180216
  Transmission Date: 20180509
  Serious: Yes (Hospitalization)
  Sender: FDA-Public Use
  Company Number: US-PFIZER INC-2018022500

PATIENT
  Sex: Male

DRUGS (2)
  1. HYDROCORTISONE. [Suspect]
     Active Substance: HYDROCORTISONE
     Indication: ADRENAL INSUFFICIENCY
     Dosage: 30 MG, DAILY (20 MG 8 AM; 10 MG 8 PM)
     Route: 048
     Dates: start: 2001
  2. HYDROCORTISONE. [Suspect]
     Active Substance: HYDROCORTISONE
     Dosage: 30 MG, DAILY (20 MG 8 AM; 10 MG 8 PM)
     Route: 048

REACTIONS (2)
  - Intentional product misuse [Unknown]
  - Pituitary tumour benign [Unknown]
